FAERS Safety Report 7824084-3 (Version None)
Quarter: 2011Q4

REPORT INFORMATION
  Report Type: 
  Country: None (occurrence: None)
  Receive Date: 20111019
  Receipt Date: 20111010
  Transmission Date: 20120403
  Serious: Yes (Other)
  Sender: FDA-Public Use
  Company Number: PHFR2011GB04192

PATIENT
  Sex: Male

DRUGS (3)
  1. TEGRETOL [Suspect]
  2. TEGRETOL [Suspect]
     Dosage: 800 MG, BID
  3. TEGRETOL [Suspect]
     Dosage: 400 MG, BID

REACTIONS (6)
  - HAEMATOTOXICITY [None]
  - BLOOD TEST ABNORMAL [None]
  - HEPATOTOXICITY [None]
  - NEPHROPATHY TOXIC [None]
  - FEELING ABNORMAL [None]
  - MALAISE [None]
